FAERS Safety Report 11545442 (Version 1)
Quarter: 2015Q3

REPORT INFORMATION
  Report Type: Report from Study
  Country: CN (occurrence: CN)
  Receive Date: 20150924
  Receipt Date: 20150924
  Transmission Date: 20151125
  Serious: Yes (Other)
  Sender: FDA-Public Use
  Company Number: CN-SA-2015SA142643

PATIENT
  Sex: Female

DRUGS (1)
  1. DOCETAXEL. [Suspect]
     Active Substance: DOCETAXEL
     Indication: OVARIAN CLEAR CELL CARCINOMA
     Dosage: DAY 1, WEEKS 1-3 AND EVERY 4 WEEKS FOR 3 CYCLES
     Route: 042

REACTIONS (1)
  - Leukopenia [Unknown]
